FAERS Safety Report 6881832-7 (Version None)
Quarter: 2010Q3

REPORT INFORMATION
  Report Type: 
  Country: None (occurrence: None)
  Receive Date: 20100728
  Receipt Date: 20100728
  Transmission Date: 20110219
  Serious: No
  Sender: FDA-Public Use
  Company Number: None

PATIENT
  Sex: Male
  Weight: 138.3471 kg

DRUGS (1)
  1. LISINOPRIL AND HYDROCHLOROTHIAZIDE [Suspect]
     Indication: ESSENTIAL HYPERTENSION
     Dosage: ONE PO BID PO
     Route: 048
     Dates: start: 20100609, end: 20100722

REACTIONS (2)
  - COUGH [None]
  - DRUG INTOLERANCE [None]
